FAERS Safety Report 16827883 (Version 2)
Quarter: 2019Q4

REPORT INFORMATION
  Report Type: Spontaneous
  Country: US (occurrence: US)
  Receive Date: 20190919
  Receipt Date: 20191118
  Transmission Date: 20200122
  Serious: No
  Sender: FDA-Public Use
  Company Number: US-PFIZER INC-2019404512

PATIENT
  Age: 71 Year
  Sex: Female

DRUGS (1)
  1. GABAPENTIN. [Suspect]
     Active Substance: GABAPENTIN
     Indication: NEUROPATHY PERIPHERAL
     Dosage: 100 MG, 3X/DAY

REACTIONS (6)
  - Dizziness [Unknown]
  - Product use in unapproved indication [Unknown]
  - Memory impairment [Unknown]
  - Muscle twitching [Unknown]
  - Off label use [Unknown]
  - Feeling abnormal [Unknown]
